FAERS Safety Report 10018381 (Version 1)
Quarter: 2014Q1

REPORT INFORMATION
  Report Type: Spontaneous
  Country: US (occurrence: US)
  Receive Date: 20140318
  Receipt Date: 20140318
  Transmission Date: 20141002
  Serious: No
  Sender: FDA-Public Use
  Company Number: US-009507513-1402USA011007

PATIENT
  Sex: Female

DRUGS (2)
  1. ASMANEX TWISTHALER [Suspect]
     Dosage: 220 MICROGRAM (1 4 DOSES) 1 STANDARD PACKAGE CANISTER OF 1, TWICE DAILY
     Route: 055
  2. ASMANEX TWISTHALER [Suspect]
     Dosage: 220 MICROGRAM (1 4 DOSES) 1 STANDARD PACKAGE CANISTER OF 1, QOD
     Route: 055

REACTIONS (2)
  - Weight increased [Unknown]
  - Inappropriate schedule of drug administration [Unknown]
